FAERS Safety Report 8391478-X (Version None)
Quarter: 2012Q2

REPORT INFORMATION
  Report Type: 
  Country: None (occurrence: None)
  Receive Date: 20120529
  Receipt Date: 20120521
  Transmission Date: 20120825
  Serious: Yes (Other)
  Sender: FDA-Public Use
  Company Number: US-BAYER-2012-051672

PATIENT
  Age: 49 Year
  Sex: Female
  Weight: 59.864 kg

DRUGS (6)
  1. YAZ [Suspect]
  2. YASMIN [Suspect]
  3. DROSPIRENONE AND ETHINYL ESTRADIOL [Suspect]
  4. AMOXICILLIN AND CLAVULANATE POTASSIUM [Concomitant]
     Dosage: 875 +#8211; 125 MG TAB
     Route: 048
  5. PREDNISONE TAB [Concomitant]
     Dosage: 10 MG, UNK
     Route: 048
  6. HYDROCODONE BITARTRATE AND ACETAMINOPHEN [Concomitant]
     Dosage: 5 +#8211; 500 TABLET
     Route: 048

REACTIONS (1)
  - DEEP VEIN THROMBOSIS [None]
